FAERS Safety Report 4305145-2 (Version None)
Quarter: 2004Q1

REPORT INFORMATION
  Report Type: 
  Country: None (occurrence: None)
  Receive Date: 20040225
  Receipt Date: 20040225
  Transmission Date: 20041129
  Serious: Yes (Hospitalization)
  Sender: FDA-Public Use
  Company Number: None

PATIENT
  Sex: Female

DRUGS (6)
  1. MORPHINE [Suspect]
     Indication: PAIN
     Dosage: 1/3/10 IV CON INF
     Route: 042
     Dates: start: 20031115, end: 20031119
  2. FENTANYL [Concomitant]
  3. LORAZEPAM [Concomitant]
  4. LANSOPRAZOLE [Concomitant]
  5. HEPARIN [Concomitant]
  6. WARFARIN SODIUM [Concomitant]

REACTIONS (4)
  - CONFUSIONAL STATE [None]
  - DISORIENTATION [None]
  - DRUG EFFECT DECREASED [None]
  - PAIN [None]
